FAERS Safety Report 24036481 (Version 2)
Quarter: 2024Q3

REPORT INFORMATION
  Report Type: Spontaneous
  Country: US (occurrence: US)
  Receive Date: 20240701
  Receipt Date: 20240704
  Transmission Date: 20241017
  Serious: No
  Sender: AMGEN
  Company Number: US-AMGEN-USASP2024126829

PATIENT
  Age: 76 Year
  Sex: Female

DRUGS (1)
  1. REPATHA [Suspect]
     Active Substance: EVOLOCUMAB
     Indication: Product used for unknown indication
     Dosage: STRENGTH 140 MILLIGRAM
     Route: 065

REACTIONS (4)
  - Device difficult to use [Unknown]
  - Injection site swelling [Recovering/Resolving]
  - Injection site erythema [Recovering/Resolving]
  - Skin disorder [Unknown]

NARRATIVE: CASE EVENT DATE: 20240101
